FAERS Safety Report 21208047 (Version 1)
Quarter: 2022Q3

REPORT INFORMATION
  Report Type: Spontaneous
  Country: DE (occurrence: DE)
  Receive Date: 20220812
  Receipt Date: 20220812
  Transmission Date: 20221027
  Serious: Yes (Hospitalization)
  Sender: FDA-Public Use
  Company Number: DE-JNJFOC-20220811345

PATIENT
  Age: 2 Year
  Sex: Male

DRUGS (1)
  1. FIBRINOGEN HUMAN\THROMBIN HUMAN [Suspect]
     Active Substance: FIBRINOGEN HUMAN\THROMBIN HUMAN
     Indication: Tissue sealing
     Route: 065

REACTIONS (4)
  - Tracheo-oesophageal fistula [Recovered/Resolved]
  - Respiratory tract infection [Recovered/Resolved]
  - Off label use [Unknown]
  - Drug ineffective for unapproved indication [Unknown]
